FAERS Safety Report 6601000-3 (Version None)
Quarter: 2010Q1

REPORT INFORMATION
  Report Type: 
  Country: None (occurrence: None)
  Receive Date: 20100225
  Receipt Date: 20100216
  Transmission Date: 20100710
  Serious: Yes (Other)
  Sender: FDA-Public Use
  Company Number: JP-JNJFOC-20041201295

PATIENT
  Sex: Male
  Weight: 66 kg

DRUGS (19)
  1. CLADRIBINE [Suspect]
     Indication: HAIRY CELL LEUKAEMIA
     Route: 042
  2. ALLOPURINOL [Concomitant]
     Indication: PROPHYLAXIS
     Route: 048
  3. DIFLUCAN [Concomitant]
     Indication: INFECTION PROPHYLAXIS
     Route: 048
  4. CIPROFLOXACIN HYDROCHLORIDE [Concomitant]
     Indication: INFECTION PROPHYLAXIS
     Route: 048
  5. BAKTAR [Concomitant]
     Indication: INFECTION PROPHYLAXIS
     Route: 048
  6. MODACIN [Concomitant]
     Indication: INFECTION
     Route: 042
  7. GENTAMICIN [Concomitant]
     Indication: INFECTION
     Route: 042
  8. IMMUNE GLOBULIN INTRAVENOUS (HUMAN) [Concomitant]
     Indication: INFECTION
     Route: 042
  9. ALLELOCK [Concomitant]
     Indication: RASH
     Route: 048
  10. BENAMBAX [Concomitant]
     Indication: ANTIFUNGAL PROPHYLAXIS
     Route: 045
  11. ALOTEC [Concomitant]
     Indication: ANTIFUNGAL PROPHYLAXIS
     Route: 045
  12. DIACORT [Concomitant]
     Indication: RASH
     Route: 061
  13. ZOFRAN [Concomitant]
     Indication: NAUSEA
     Route: 042
  14. PRIMPERAN [Concomitant]
     Indication: NAUSEA
     Route: 042
  15. ATARAX [Concomitant]
     Indication: NAUSEA
     Route: 042
  16. GRAN [Concomitant]
     Route: 042
  17. GRAN [Concomitant]
     Route: 042
  18. PLATELETS [Concomitant]
     Indication: TRANSFUSION
     Route: 042
  19. PLATELETS [Concomitant]
     Route: 042

REACTIONS (21)
  - AZOTAEMIA [None]
  - C-REACTIVE PROTEIN INCREASED [None]
  - DECREASED APPETITE [None]
  - GAMMA-GLUTAMYLTRANSFERASE INCREASED [None]
  - HEPATIC FUNCTION ABNORMAL [None]
  - HYPERBILIRUBINAEMIA [None]
  - HYPERHIDROSIS [None]
  - HYPERKALAEMIA [None]
  - HYPOALBUMINAEMIA [None]
  - HYPOCHLORAEMIA [None]
  - HYPONATRAEMIA [None]
  - INFECTION [None]
  - LYMPHOPENIA [None]
  - NAUSEA [None]
  - NEUTROPENIA [None]
  - PANCYTOPENIA [None]
  - PLATELET COUNT DECREASED [None]
  - PROTEIN TOTAL DECREASED [None]
  - PYREXIA [None]
  - RASH [None]
  - URINE ANALYSIS ABNORMAL [None]
